FAERS Safety Report 4510142-8 (Version None)
Quarter: 2004Q4

REPORT INFORMATION
  Report Type: 
  Country: None (occurrence: None)
  Receive Date: 20041124
  Receipt Date: 20030314
  Transmission Date: 20050328
  Serious: Yes (Life-Threatening, Hospitalization)
  Sender: FDA-Public Use
  Company Number: US-BRISTOL-MYERS SQUIBB COMPANY-12218335

PATIENT
  Age: 26 Year
  Sex: Female
  Weight: 58 kg

DRUGS (7)
  1. ZERIT [Suspect]
     Indication: HIV INFECTION
     Dosage: DISCONTINUED ON 06-NOV-2002 AND RESTARTED ON MAY-2003
     Route: 048
     Dates: start: 20020622
  2. VIDEX [Suspect]
     Indication: HIV INFECTION
     Route: 048
     Dates: start: 20020622, end: 20021106
  3. TENOFOVIR [Suspect]
     Indication: HIV INFECTION
     Route: 048
     Dates: start: 20020601, end: 20021101
  4. COTRIM [Concomitant]
     Indication: INFECTION PROPHYLAXIS
     Route: 048
     Dates: start: 19950101
  5. DIANETTE [Concomitant]
     Indication: CONTRACEPTION
     Route: 048
     Dates: start: 19970101
  6. ACETAMINOPHEN [Concomitant]
     Indication: HEADACHE
     Route: 048
  7. ACETAMINOPHEN [Concomitant]
     Indication: PAIN
     Route: 048

REACTIONS (18)
  - ALANINE AMINOTRANSFERASE INCREASED [None]
  - ASPARTATE AMINOTRANSFERASE INCREASED [None]
  - BASE EXCESS INCREASED [None]
  - BLOOD BICARBONATE DECREASED [None]
  - BLOOD BILIRUBIN INCREASED [None]
  - BLOOD PH INCREASED [None]
  - CRYPTOCOCCOSIS [None]
  - DEHYDRATION [None]
  - DYSPNOEA [None]
  - FEELING ABNORMAL [None]
  - HEPATOTOXICITY [None]
  - JAUNDICE [None]
  - LACTIC ACIDOSIS [None]
  - MITOCHONDRIAL TOXICITY [None]
  - NAUSEA [None]
  - PCO2 DECREASED [None]
  - PO2 INCREASED [None]
  - VOMITING [None]
